FAERS Safety Report 14513096 (Version 1)
Quarter: 2018Q1

REPORT INFORMATION
  Report Type: Spontaneous
  Country: US (occurrence: US)
  Receive Date: 20180208
  Receipt Date: 20180208
  Transmission Date: 20180509
  Serious: Yes (Death)
  Sender: FDA-Public Use
  Company Number: None

PATIENT
  Age: 79 Year
  Sex: Male
  Weight: 78.75 kg

DRUGS (12)
  1. SYNTHROID [Concomitant]
     Active Substance: LEVOTHYROXINE SODIUM
  2. LEVAQUIN [Concomitant]
     Active Substance: LEVOFLOXACIN
  3. ZOSYN [Concomitant]
     Active Substance: PIPERACILLIN SODIUM\TAZOBACTAM SODIUM
  4. COQENZYME [Concomitant]
  5. ARICEPT [Concomitant]
     Active Substance: DONEPEZIL HYDROCHLORIDE
  6. AMIODARONE [Concomitant]
     Active Substance: AMIODARONE
  7. K+ [Concomitant]
     Active Substance: POTASSIUM
  8. LIPITOR [Concomitant]
     Active Substance: ATORVASTATIN CALCIUM
  9. LASIX [Concomitant]
     Active Substance: FUROSEMIDE
  10. NAMMENDA [Concomitant]
  11. HALDOL [Suspect]
     Active Substance: HALOPERIDOL
     Route: 042
     Dates: start: 20180106, end: 20180110
  12. VANCOMYCIN [Concomitant]
     Active Substance: VANCOMYCIN

REACTIONS (1)
  - Toxicity to various agents [None]

NARRATIVE: CASE EVENT DATE: 20180110
